FAERS Safety Report 4982357-6 (Version None)
Quarter: 2006Q1

REPORT INFORMATION
  Report Type: 
  Country: None (occurrence: None)
  Receive Date: 20060227
  Receipt Date: 20050802
  Transmission Date: 20060701
  Serious: Yes (Other)
  Sender: FDA-Public Use
  Company Number: WAES 0508USA00997

PATIENT
  Age: 78 Year
  Sex: Male

DRUGS (8)
  1. ZOCOR [Suspect]
     Indication: HYPERCHOLESTEROLAEMIA
     Dosage: 40 MG/DAILY/PO
     Route: 048
     Dates: start: 20040831, end: 20050422
  2. ATENOLOL [Concomitant]
  3. COAL TAR [Concomitant]
  4. DIGOXIN [Concomitant]
  5. DOCUSATE SODIUM [Concomitant]
  6. FOSIOPRIL SODIUM [Concomitant]
  7. PROPAFENONE HYDROCHLORIDE [Concomitant]
  8. SENNOSIDES [Concomitant]

REACTIONS (1)
  - PERIPHERAL SENSORY NEUROPATHY [None]
